FAERS Safety Report 7443322-2 (Version None)
Quarter: 2011Q2

REPORT INFORMATION
  Report Type: 
  Country: None (occurrence: None)
  Receive Date: 20110428
  Receipt Date: 20110426
  Transmission Date: 20111010
  Serious: Yes (Hospitalization, Other)
  Sender: FDA-Public Use
  Company Number: FR-ABBOTT-11P-056-0719108-00

PATIENT
  Sex: Male

DRUGS (4)
  1. NORVIR [Suspect]
     Indication: HIV INFECTION
     Route: 048
     Dates: start: 20060418, end: 20110302
  2. REYATAZ [Suspect]
     Indication: HIV INFECTION
     Route: 048
     Dates: start: 20060418, end: 20110302
  3. TRUVADA [Suspect]
     Indication: HIV INFECTION
     Dosage: 200 MG/ 245 MG
     Route: 048
     Dates: start: 20060418, end: 20110302
  4. SOLUPRED [Concomitant]
     Indication: RESPIRATORY TRACT INFECTION

REACTIONS (9)
  - HYPOTHALAMO-PITUITARY DISORDER [None]
  - ASCITES [None]
  - RHABDOMYOLYSIS [None]
  - AMYOTROPHY [None]
  - MYOSITIS [None]
  - BLOOD CORTISOL DECREASED [None]
  - MUSCULAR WEAKNESS [None]
  - SPONTANEOUS HAEMATOMA [None]
  - BLOOD PROLACTIN INCREASED [None]
